FAERS Safety Report 7931134-2 (Version None)
Quarter: 2011Q4

REPORT INFORMATION
  Report Type: 
  Country: None (occurrence: None)
  Receive Date: 20111121
  Receipt Date: 20111111
  Transmission Date: 20120403
  Serious: Yes (Hospitalization, Other)
  Sender: FDA-Public Use
  Company Number: US-ALEXION PHARMACEUTICALS INC.-A201101647

PATIENT
  Sex: Female

DRUGS (7)
  1. SOLIRIS [Suspect]
     Indication: PAROXYSMAL NOCTURNAL HAEMOGLOBINURIA
     Dosage: 900 MG, Q2W
     Route: 042
     Dates: start: 20090101
  2. ACETAZOLAMIDE [Concomitant]
     Dosage: UNK
  3. KEPPRA [Concomitant]
     Dosage: UNK
  4. COLACE [Concomitant]
     Dosage: UNK
  5. IRON [Concomitant]
     Dosage: UNK
  6. NORCO [Concomitant]
     Dosage: UNK
  7. MIRALAX [Concomitant]
     Dosage: UNK

REACTIONS (8)
  - GONORRHOEA [None]
  - BACK PAIN [None]
  - SEPSIS [None]
  - HYPOTENSION [None]
  - VOMITING [None]
  - HEADACHE [None]
  - CHEST PAIN [None]
  - DIZZINESS [None]
